FAERS Safety Report 9412132 (Version 1)
Quarter: 2013Q3

REPORT INFORMATION
  Report Type: Spontaneous
  Country: US (occurrence: US)
  Receive Date: 20130722
  Receipt Date: 20130722
  Transmission Date: 20140515
  Serious: Yes (Death)
  Sender: FDA-Public Use
  Company Number: US-GENZYME-THYM-1003918

PATIENT
  Age: 29 Year
  Sex: Male

DRUGS (2)
  1. THYMOGLOBULIN [Suspect]
     Indication: RENAL TRANSPLANT
     Dosage: UNK
     Route: 065
     Dates: start: 2013, end: 2013
  2. CORTICOSTEROIDS [Concomitant]
     Indication: PRODUCT USED FOR UNKNOWN INDICATION
     Dosage: UNK (STARTED HALF AN HOUR BEFORE THYMOGLOBULIN INITIATION)
     Route: 065
     Dates: start: 2013, end: 2013

REACTIONS (2)
  - Circulatory collapse [Fatal]
  - Anaphylactic reaction [Fatal]
